FAERS Safety Report 4326258-5 (Version None)
Quarter: 2004Q1

REPORT INFORMATION
  Report Type: 
  Country: None (occurrence: None)
  Receive Date: 20040329
  Receipt Date: 20040319
  Transmission Date: 20041129
  Serious: Yes (Hospitalization)
  Sender: FDA-Public Use
  Company Number: CA-MERCK-0403CAN00135

PATIENT
  Age: 3 Week
  Sex: Female

DRUGS (2)
  1. BRIMONIDINE TARTRATE [Suspect]
     Route: 065
  2. TIMOPTIC [Suspect]
     Indication: INTRAOCULAR PRESSURE INCREASED
     Route: 047

REACTIONS (5)
  - APNOEA [None]
  - BLOOD PRESSURE DECREASED [None]
  - BRADYCARDIA [None]
  - HYPOTENSION [None]
  - HYPOTHERMIA [None]
